FAERS Safety Report 12648584 (Version 1)
Quarter: 2016Q3

REPORT INFORMATION
  Report Type: Report from Study
  Country: US (occurrence: US)
  Receive Date: 20160812
  Receipt Date: 20160812
  Transmission Date: 20161109
  Serious: Yes (Hospitalization, Other)
  Sender: FDA-Public Use
  Company Number: US-ABBVIE-16K-163-1681619-00

PATIENT
  Age: 68 Year
  Sex: Female
  Weight: 99.88 kg

DRUGS (4)
  1. HUMIRA [Suspect]
     Active Substance: ADALIMUMAB
     Indication: RHEUMATOID ARTHRITIS
     Route: 058
     Dates: start: 2000, end: 2013
  2. METHOTREXATE. [Suspect]
     Active Substance: METHOTREXATE
     Indication: RHEUMATOID ARTHRITIS
     Route: 065
  3. HUMIRA [Suspect]
     Active Substance: ADALIMUMAB
     Route: 058
     Dates: start: 20160716
  4. HYDROXYCHLOROQUINE [Concomitant]
     Active Substance: HYDROXYCHLOROQUINE
     Indication: RHEUMATOID ARTHRITIS

REACTIONS (7)
  - Cholelithiasis [Recovered/Resolved]
  - Hepatic enzyme increased [Unknown]
  - Injection site papule [Not Recovered/Not Resolved]
  - Adverse drug reaction [Unknown]
  - Cholecystectomy [Unknown]
  - Injection site erythema [Not Recovered/Not Resolved]
  - Hepatic cirrhosis [Recovering/Resolving]

NARRATIVE: CASE EVENT DATE: 2000
